FAERS Safety Report 25741931 (Version 1)
Quarter: 2025Q3

REPORT INFORMATION
  Report Type: Spontaneous
  Country: US (occurrence: US)
  Receive Date: 20250829
  Receipt Date: 20250829
  Transmission Date: 20251020
  Serious: Yes (Death, Other)
  Sender: AMGEN
  Company Number: US-AMGEN-USASP2025167871

PATIENT

DRUGS (4)
  1. RITUXIMAB [Suspect]
     Active Substance: RITUXIMAB
     Indication: Glomerulonephritis membranous
     Route: 065
  2. ACETAMINOPHEN [Concomitant]
     Active Substance: ACETAMINOPHEN
     Route: 048
  3. DIPHENHYDRAMINE HYDROCHLORIDE [Concomitant]
     Active Substance: DIPHENHYDRAMINE HYDROCHLORIDE
  4. METHYLPREDNISOLONE [Concomitant]
     Active Substance: METHYLPREDNISOLONE
     Route: 040

REACTIONS (11)
  - Death [Fatal]
  - End stage renal disease [Fatal]
  - Cardiovascular disorder [Fatal]
  - Small cell lung cancer extensive stage [Fatal]
  - Transitional cell carcinoma [Fatal]
  - Glomerulonephritis membranous [Unknown]
  - Respiratory tract infection [Unknown]
  - Infection [Unknown]
  - Infusion site reaction [Unknown]
  - Therapy partial responder [Unknown]
  - Off label use [Unknown]
